FAERS Safety Report 8955457 (Version 1)
Quarter: 2012Q4

REPORT INFORMATION
  Report Type: 
  Country: US (occurrence: US)
  Receive Date: 20121207
  Receipt Date: 20121207
  Transmission Date: 20130627
  Serious: No
  Sender: FDA-Public Use
  Company Number: US-009507513-1207USA010446

PATIENT
  Age: 78 Year
  Sex: Female
  Weight: 62.59 kg

DRUGS (4)
  1. LOTRIMIN ULTRA [Suspect]
     Indication: TINEA PEDIS
     Dosage: UNK, qd
     Route: 061
     Dates: start: 20120619, end: 20120712
  2. AMLODIPINE [Concomitant]
     Indication: HYPERTENSION
  3. SPIRONOLACTONE [Concomitant]
     Indication: HYPERTENSION
  4. LEVOXYL [Concomitant]
     Indication: THYROID DISORDER

REACTIONS (1)
  - Drug ineffective [Unknown]
